FAERS Safety Report 11246892 (Version 4)
Quarter: 2015Q3

REPORT INFORMATION
  Report Type: Spontaneous
  Country: HU (occurrence: HU)
  Receive Date: 20150708
  Receipt Date: 20150818
  Transmission Date: 20151125
  Serious: Yes (Hospitalization)
  Sender: FDA-Public Use
  Company Number: HU-BIOGENIDEC-2015BI092038

PATIENT
  Age: 49 Year
  Sex: Female

DRUGS (1)
  1. TECFIDERA [Suspect]
     Active Substance: DIMETHYL FUMARATE
     Indication: MULTIPLE SCLEROSIS
     Route: 048
     Dates: start: 20150520, end: 20150602

REACTIONS (7)
  - C-reactive protein increased [Unknown]
  - Subileus [Recovered/Resolved]
  - Leiomyoma [Recovered/Resolved]
  - Constipation [Unknown]
  - Ovarian cyst [Recovered/Resolved]
  - Pelvic inflammatory disease [Recovered/Resolved]
  - Pyrexia [Recovered/Resolved]

NARRATIVE: CASE EVENT DATE: 201505
